FAERS Safety Report 15189496 (Version 1)
Quarter: 2018Q3

REPORT INFORMATION
  Report Type: Spontaneous
  Country: US (occurrence: US)
  Receive Date: 20180724
  Receipt Date: 20180724
  Transmission Date: 20181010
  Serious: No
  Sender: FDA-Public Use
  Company Number: US-MYLANLABS-2018M1048022

PATIENT
  Sex: Female

DRUGS (1)
  1. OXYBUTYNIN CHLORIDE EXTENDED?RELEASE TABLETS USP [Suspect]
     Active Substance: OXYBUTYNIN CHLORIDE
     Dosage: UNK
     Route: 048

REACTIONS (3)
  - Drug ineffective [Unknown]
  - Intentional product misuse [Unknown]
  - Medication residue present [Unknown]
